FAERS Safety Report 16957199 (Version 4)
Quarter: 2020Q1

REPORT INFORMATION
  Report Type: Report from Study
  Country: IT (occurrence: IT)
  Receive Date: 20191024
  Receipt Date: 20200305
  Transmission Date: 20200409
  Serious: Yes (Other)
  Sender: FDA-Public Use
  Company Number: PHHY2018IT165143

PATIENT
  Age: 69 Year
  Sex: Female

DRUGS (21)
  1. TAFINLAR [Suspect]
     Active Substance: DABRAFENIB MESYLATE
     Dosage: 300 OT, UNK
     Route: 065
     Dates: start: 20181101, end: 20181108
  2. TRAMETINIB [Suspect]
     Active Substance: TRAMETINIB
     Dosage: 2 OT, UNK
     Route: 065
     Dates: start: 20190913
  3. MOUTH WASH [Concomitant]
     Indication: FUNGAL INFECTION
     Dosage: 1 OT, UNK
     Route: 048
     Dates: start: 20181024, end: 20190212
  4. TRAMETINIB [Suspect]
     Active Substance: TRAMETINIB
     Dosage: 2 OT, UNK
     Route: 065
     Dates: start: 20190213, end: 20190801
  5. TAFINLAR [Suspect]
     Active Substance: DABRAFENIB MESYLATE
     Dosage: 300 OT, UNK
     Route: 065
     Dates: start: 20190213, end: 20190801
  6. DENOSUMAB [Concomitant]
     Active Substance: DENOSUMAB
     Indication: BONE PAIN
  7. OMEPRAZOLO ABC [Concomitant]
     Indication: PROPHYLAXIS
     Dosage: 20 MG
     Route: 048
     Dates: start: 20191014
  8. TAFINLAR [Suspect]
     Active Substance: DABRAFENIB MESYLATE
     Dosage: 300 OT, UNK
     Route: 065
     Dates: start: 20181109, end: 20190201
  9. TRAMETINIB [Suspect]
     Active Substance: TRAMETINIB
     Indication: METASTATIC MALIGNANT MELANOMA
     Dosage: 2 OT, UNK
     Route: 065
     Dates: start: 20180828, end: 20181031
  10. PARACODOL [Concomitant]
     Indication: PAIN
     Dosage: 530 OT, UNK
     Route: 048
     Dates: start: 20180828
  11. MICONAZOLE. [Concomitant]
     Active Substance: MICONAZOLE
     Indication: FUNGAL INFECTION
     Dosage: 3 OT, UNK
     Route: 061
     Dates: start: 20181101, end: 20181112
  12. TAFINLAR [Suspect]
     Active Substance: DABRAFENIB MESYLATE
     Dosage: 300 OT, UNK
     Route: 065
     Dates: start: 20190202, end: 20190212
  13. TAFINLAR [Suspect]
     Active Substance: DABRAFENIB MESYLATE
     Dosage: 300 OT, UNK
     Route: 065
     Dates: start: 20190913
  14. TRAMETINIB [Suspect]
     Active Substance: TRAMETINIB
     Dosage: 2 OT, UNK
     Route: 065
     Dates: start: 20181101, end: 20181108
  15. TRAMETINIB [Suspect]
     Active Substance: TRAMETINIB
     Dosage: 2 OT, UNK
     Route: 065
     Dates: start: 20181109, end: 20190201
  16. TRAMETINIB [Suspect]
     Active Substance: TRAMETINIB
     Dosage: 2 OT, UNK
     Route: 065
     Dates: start: 20190202, end: 20190212
  17. TACHIDOL [Concomitant]
     Active Substance: ACETAMINOPHEN\CODEINE PHOSPHATE
     Indication: PAIN
     Dosage: 530 OT, UNK
     Route: 048
     Dates: start: 20180828
  18. DENOSUMAB [Concomitant]
     Active Substance: DENOSUMAB
     Indication: METASTASES TO BONE
     Dosage: 120 OT, UNK
     Route: 058
     Dates: start: 20180828
  19. DEXAMETHASONE. [Concomitant]
     Active Substance: DEXAMETHASONE
     Indication: FUNGAL INFECTION
     Dosage: 32 OT, UNK
     Route: 048
     Dates: start: 20181101, end: 20181112
  20. TAFINLAR [Suspect]
     Active Substance: DABRAFENIB MESYLATE
     Indication: METASTATIC MALIGNANT MELANOMA
     Dosage: 300 OT, UNK
     Route: 065
     Dates: start: 20180828, end: 20181031
  21. FLUCONAZOLO [Concomitant]
     Indication: FUNGAL INFECTION
     Dosage: 100 OT, UNK
     Route: 048
     Dates: start: 20181101, end: 20181112

REACTIONS (10)
  - Hypertension [Recovered/Resolved]
  - Blood cholesterol increased [Recovered/Resolved]
  - Atrial fibrillation [Recovering/Resolving]
  - Stomatitis [Recovered/Resolved]
  - Stomatitis [Recovered/Resolved]
  - Stomatitis [Recovered/Resolved]
  - Hypertensive crisis [Recovered/Resolved]
  - Hypertension [Recovered/Resolved]
  - Dysphonia [Recovered/Resolved]
  - Pyrexia [Recovered/Resolved]

NARRATIVE: CASE EVENT DATE: 20180908
